FAERS Safety Report 25753710 (Version 1)
Quarter: 2025Q3

REPORT INFORMATION
  Report Type: Spontaneous
  Country: EU (occurrence: EU)
  Receive Date: 20250903
  Receipt Date: 20250903
  Transmission Date: 20251021
  Serious: Yes (Other)
  Sender: TEVA
  Company Number: None

PATIENT
  Age: 67 Year
  Sex: Female
  Weight: 84 kg

DRUGS (1)
  1. LOSARTAN [Suspect]
     Active Substance: LOSARTAN
     Indication: Hypertension
     Dosage: 1 PER DAY, LOSARTAN TABLET FO  25MG / BRAND NAME NOT SPECIFIED
     Route: 048
     Dates: start: 20230901

REACTIONS (2)
  - Renal impairment [Unknown]
  - Gout [Unknown]
